FAERS Safety Report 8055117-X (Version None)
Quarter: 2012Q1

REPORT INFORMATION
  Report Type: 
  Country: None (occurrence: None)
  Receive Date: 20120119
  Receipt Date: 20120113
  Transmission Date: 20120608
  Serious: Yes (Death, Hospitalization)
  Sender: FDA-Public Use
  Company Number: US-CELGENEUS-163-21880-12011560

PATIENT
  Age: 84 Year
  Sex: Male

DRUGS (10)
  1. TAMSULOSIN HCL [Concomitant]
     Route: 065
  2. CALCITONIN SALMON [Concomitant]
     Route: 065
  3. MIDODRINE HYDROCHLORIDE [Concomitant]
     Route: 065
  4. REVLIMID [Suspect]
     Dosage: 5 MILLIGRAM
     Route: 048
     Dates: start: 20110125, end: 20110401
  5. VICODIN [Concomitant]
     Route: 065
  6. DECADRON [Suspect]
     Indication: MULTIPLE MYELOMA
     Route: 065
     Dates: start: 20101229
  7. REVLIMID [Suspect]
     Indication: MULTIPLE MYELOMA
     Dosage: 10 MILLIGRAM
     Route: 048
     Dates: start: 20101229
  8. PRILOSEC [Concomitant]
     Route: 065
  9. DECADRON [Suspect]
     Route: 065
     Dates: start: 20110125
  10. MAGESTROL [Concomitant]
     Route: 065

REACTIONS (3)
  - DEATH [None]
  - ATRIAL FIBRILLATION [None]
  - SEPTIC SHOCK [None]
